FAERS Safety Report 15134195 (Version 4)
Quarter: 2019Q1

REPORT INFORMATION
  Report Type: Report from Study
  Country: DE (occurrence: DE)
  Receive Date: 20180712
  Receipt Date: 20190201
  Transmission Date: 20190417
  Serious: Yes (Hospitalization, Other)
  Sender: FDA-Public Use
  Company Number: PHHY2018DE036574

PATIENT
  Age: 81 Year
  Weight: 98 kg

DRUGS (4)
  1. TORSEMIDE. [Concomitant]
     Active Substance: TORSEMIDE
     Indication: CARDIAC FAILURE
     Dosage: 15 OT, UNK
     Route: 048
     Dates: start: 20170509
  2. ENTRESTO [Suspect]
     Active Substance: SACUBITRIL\VALSARTAN
     Indication: CARDIAC FAILURE
     Dosage: 1 DF (97MG SACUBITRIL AND 103 MG VALSARTAN), BID (1-0-1)
     Route: 048
     Dates: start: 20171128
  3. BISOPROLOL [Concomitant]
     Active Substance: BISOPROLOL
     Indication: CARDIAC FAILURE
     Dosage: 5 OT, UNK
     Route: 048
     Dates: start: 20120127
  4. SPIRONOLACTONE. [Concomitant]
     Active Substance: SPIRONOLACTONE
     Indication: CARDIAC FAILURE
     Dosage: 50 OT, UNK
     Route: 048
     Dates: start: 20171121

REACTIONS (3)
  - Urinary tract infection [Recovered/Resolved]
  - Blood potassium increased [Unknown]
  - Plasma cell myeloma [Not Recovered/Not Resolved]

NARRATIVE: CASE EVENT DATE: 20180623
